FAERS Safety Report 20433338 (Version 1)
Quarter: 2022Q1

REPORT INFORMATION
  Report Type: Spontaneous
  Country: FR (occurrence: FR)
  Receive Date: 20220205
  Receipt Date: 20220205
  Transmission Date: 20220423
  Serious: Yes (Other)
  Sender: FDA-Public Use
  Company Number: None

PATIENT
  Age: 31 Year
  Sex: Female

DRUGS (3)
  1. CLOZAPINE [Suspect]
     Active Substance: CLOZAPINE
     Indication: Mania
     Dosage: 25MG THEN 75MG
     Route: 048
     Dates: start: 20211027, end: 20211104
  2. TEMESTA [Concomitant]
     Dosage: 1 MG, SCORED TABLET
  3. TERALITHE [Concomitant]
     Active Substance: LITHIUM CARBONATE
     Dosage: 400 MG, PROLONGED-RELEASE SCORED TABLET

REACTIONS (2)
  - Hepatic cytolysis [Recovered/Resolved]
  - Cholestasis [Recovered/Resolved]

NARRATIVE: CASE EVENT DATE: 20211104
